FAERS Safety Report 9124123 (Version 1)
Quarter: 2013Q1

REPORT INFORMATION
  Report Type: Report from Study
  Country: FR (occurrence: FR)
  Receive Date: 20130116
  Receipt Date: 20130116
  Transmission Date: 20140127
  Serious: Yes (Other)
  Sender: FDA-Public Use
  Company Number: FR-PFIZER INC-2013014125

PATIENT
  Age: 60 Year
  Sex: Female

DRUGS (1)
  1. CRIZOTINIB [Suspect]
     Dosage: 250 MG, 2X/DAY

REACTIONS (3)
  - Renal failure [Not Recovered/Not Resolved]
  - Transaminases increased [Recovering/Resolving]
  - Neutropenia [Not Recovered/Not Resolved]
